FAERS Safety Report 19222269 (Version 2)
Quarter: 2021Q2

REPORT INFORMATION
  Report Type: Spontaneous
  Country: US (occurrence: US)
  Receive Date: 20210505
  Receipt Date: 20210628
  Transmission Date: 20210717
  Serious: No
  Sender: FDA-Public Use
  Company Number: US-TEVA-2021-US-1899784

PATIENT
  Age: 79 Year
  Sex: Male
  Weight: 86.18 kg

DRUGS (7)
  1. EUCERIN ECZEMA RELIEF [Concomitant]
     Indication: ECZEMA
     Route: 065
  2. TOPICORT [Concomitant]
     Active Substance: DESOXIMETASONE
     Route: 065
  3. LYRICA [Concomitant]
     Active Substance: PREGABALIN
     Indication: PRURITUS
     Route: 065
  4. MEDROL [Concomitant]
     Active Substance: METHYLPREDNISOLONE
     Indication: COUGH
     Route: 065
  5. AJOVY [Suspect]
     Active Substance: FREMANEZUMAB-VFRM
     Indication: MIGRAINE
     Route: 065
     Dates: start: 20210331
  6. AJOVY [Suspect]
     Active Substance: FREMANEZUMAB-VFRM
  7. SOMA [Concomitant]
     Active Substance: CARISOPRODOL
     Route: 065

REACTIONS (3)
  - Pruritus [Not Recovered/Not Resolved]
  - Eye pruritus [Not Recovered/Not Resolved]
  - Feeling abnormal [Unknown]

NARRATIVE: CASE EVENT DATE: 2021
